FAERS Safety Report 8015093 (Version 5)
Quarter: 2014Q2

REPORT INFORMATION
  Report Type: Report from Study
  Country: JP (occurrence: JP)
  Receive Date: 20110629
  Receipt Date: 20140501
  Transmission Date: 20141212
  Serious: Yes (Life-Threatening)
  Sender: FDA-Public Use
  Company Number: JP-PFIZER INC-2011140429

PATIENT
  Age: 63 Week
  Sex: Female
  Weight: 6.6 kg

DRUGS (13)
  1. SILDENAFIL CITRATE [Suspect]
     Dosage: 3 MG/DAY
     Dates: start: 20091031, end: 20091102
  2. LASIX [Concomitant]
     Indication: CARDIAC FAILURE
     Dosage: 24 MG/DAY
     Route: 048
     Dates: start: 20091031
  3. LASIX [Concomitant]
     Indication: POSTOPERATIVE CARE
     Dosage: UNK
     Route: 042
  4. ALDACTONE [Concomitant]
     Indication: CARDIAC FAILURE
     Dosage: 24 MG/DAY
     Route: 048
     Dates: start: 20091031
  5. ACETYLSALICYLIC ACID [Concomitant]
     Indication: ANTIPLATELET THERAPY
     Dosage: 30 MG/DAY
     Route: 048
     Dates: start: 20091031
  6. WARFARIN [Concomitant]
     Indication: ANTIPLATELET THERAPY
     Dosage: 0-6 G/DAY
     Route: 048
     Dates: start: 20091031
  7. SOLDEM 3 [Concomitant]
     Indication: POSTOPERATIVE CARE
     Dosage: UNK
     Route: 041
  8. INOVAN [Concomitant]
     Indication: POSTOPERATIVE CARE
     Dosage: UNK
     Route: 041
     Dates: end: 20091030
  9. NITROGLYCERIN [Concomitant]
     Indication: POSTOPERATIVE CARE
     Dosage: UNK
     Route: 041
     Dates: end: 20091101
  10. MILRINONE [Concomitant]
     Indication: POSTOPERATIVE CARE
     Dosage: UNK
     Route: 041
     Dates: end: 20091101
  11. ELASPOL [Concomitant]
     Indication: POSTOPERATIVE CARE
     Dosage: UNK
     Route: 041
     Dates: end: 20091101
  12. ALBUMIN ^BEHRING^ [Concomitant]
     Indication: POSTOPERATIVE CARE
     Dosage: UNK
     Route: 041
  13. UNASYN FOR INJECTION [Concomitant]
     Indication: POSTOPERATIVE CARE
     Dosage: UNK
     Route: 041

REACTIONS (1)
  - Pulmonary oedema [Recovered/Resolved]
